FAERS Safety Report 8913133 (Version 1)
Quarter: 2012Q4

REPORT INFORMATION
  Report Type: Report from Study
  Country: US (occurrence: US)
  Receive Date: 20121119
  Receipt Date: 20121119
  Transmission Date: 20130627
  Serious: Yes (Hospitalization)
  Sender: FDA-Public Use
  Company Number: US-SANOFI-AVENTIS-2012SA081987

PATIENT
  Age: 52 Year
  Sex: Female
  Weight: 55.8 kg

DRUGS (4)
  1. OXALIPLATIN [Suspect]
     Indication: ADULT T-CELL LEUKEMIA-LYMPHOMA
     Route: 041
     Dates: start: 20121009, end: 20121009
  2. GEMCITABINE [Suspect]
     Indication: ADULT T-CELL LEUKEMIA-LYMPHOMA
     Dosage: given as intravenous infusion on day 1 and 15 of every cycle
     Route: 041
     Dates: start: 20121009, end: 20121009
  3. CEFEPIME [Concomitant]
     Dates: start: 20121009, end: 20121013
  4. IBUPROFEN [Concomitant]

REACTIONS (2)
  - Ileitis [Recovered/Resolved]
  - Pyrexia [Recovered/Resolved]
